FAERS Safety Report 7454734 (Version 2)
Quarter: 2018Q4

REPORT INFORMATION
  Report Type: Spontaneous
  Country: US (occurrence: US)
  Receive Date: 20100706
  Receipt Date: 20181005
  Transmission Date: 20190205
  Serious: No
  Sender: FDA-Public Use
  Company Number: US-PFIZER INC-2007024850

PATIENT
  Age: 27 Year
  Sex: Female
  Weight: 61.69 kg

DRUGS (4)
  1. ZITHROMAX [Suspect]
     Active Substance: AZITHROMYCIN DIHYDRATE
     Indication: OROPHARYNGEAL PAIN
     Dosage: UNK
     Route: 048
     Dates: start: 20070317, end: 20070324
  2. ZITHROMAX [Suspect]
     Active Substance: AZITHROMYCIN DIHYDRATE
     Indication: PHARYNGITIS
  3. MOTRIN [Concomitant]
     Active Substance: IBUPROFEN
  4. TYLENOL [Concomitant]
     Active Substance: ACETAMINOPHEN

REACTIONS (3)
  - Tongue blistering [Recovered/Resolved]
  - Oral mucosal blistering [Recovered/Resolved]
  - Stomatitis [Recovered/Resolved]

NARRATIVE: CASE EVENT DATE: 200703
